FAERS Safety Report 8247751-9 (Version None)
Quarter: 2012Q1

REPORT INFORMATION
  Report Type: 
  Country: None (occurrence: None)
  Receive Date: 20120330
  Receipt Date: 20120213
  Transmission Date: 20120608
  Serious: Yes (Other)
  Sender: FDA-Public Use
  Company Number: JP-GLAXOSMITHKLINE-B0782223A

PATIENT
  Sex: Female

DRUGS (7)
  1. LOXOMARIN [Concomitant]
     Indication: HEADACHE
     Route: 048
  2. LAMICTAL [Suspect]
     Indication: BORDERLINE PERSONALITY DISORDER
     Dosage: 25MG PER DAY
     Route: 048
     Dates: start: 20111115, end: 20111128
  3. LAMICTAL [Suspect]
     Dosage: 50MG PER DAY
     Route: 048
     Dates: start: 20111129, end: 20111212
  4. LAMICTAL [Suspect]
     Dosage: 200MG PER DAY
     Route: 048
     Dates: start: 20111220, end: 20120316
  5. LAMICTAL [Suspect]
     Dosage: 100MG PER DAY
     Route: 048
     Dates: start: 20111213, end: 20111219
  6. ZOLOFT [Concomitant]
     Route: 048
  7. CLONAZEPAM [Concomitant]
     Indication: IRRITABILITY
     Route: 048
     Dates: start: 20110628

REACTIONS (2)
  - ALOPECIA [None]
  - ALOPECIA AREATA [None]
